FAERS Safety Report 24642897 (Version 1)
Quarter: 2024Q4

REPORT INFORMATION
  Report Type: Spontaneous
  Country: US (occurrence: US)
  Receive Date: 20241120
  Receipt Date: 20241120
  Transmission Date: 20250115
  Serious: Yes (Hospitalization, Other)
  Sender: AMGEN
  Company Number: US-AMGEN-USASP2024224567

PATIENT
  Age: 62 Year
  Sex: Female

DRUGS (1)
  1. INFLIXIMAB [Suspect]
     Active Substance: INFLIXIMAB
     Indication: Pyoderma gangrenosum
     Dosage: 5 MILLIGRAM/KILOGRAM, Q8WK
     Route: 065

REACTIONS (14)
  - Drainage [Recovering/Resolving]
  - Pain [Recovering/Resolving]
  - Middle insomnia [Unknown]
  - C-reactive protein increased [Unknown]
  - Inflammation [Unknown]
  - Gastrointestinal wall thickening [Recovered/Resolved]
  - Hyperaemia [Recovered/Resolved]
  - Renal impairment [Recovered/Resolved]
  - Diarrhoea haemorrhagic [Recovered/Resolved]
  - Pyoderma gangrenosum [Unknown]
  - Cardiac failure congestive [Unknown]
  - Defaecation urgency [Recovered/Resolved]
  - Therapy cessation [Unknown]
  - Off label use [Unknown]
